FAERS Safety Report 12469326 (Version 2)
Quarter: 2016Q2

REPORT INFORMATION
  Report Type: Spontaneous
  Country: CN (occurrence: CN)
  Receive Date: 20160615
  Receipt Date: 20160622
  Transmission Date: 20160815
  Serious: No
  Sender: FDA-Public Use
  Company Number: CN-009507513-1509CHN004767

PATIENT
  Age: 68 Year
  Sex: Male
  Weight: 70 kg

DRUGS (7)
  1. EMEND [Suspect]
     Active Substance: APREPITANT
     Dosage: 80 MG, DAY 2 AND 3
     Route: 048
     Dates: start: 20150729, end: 20150730
  2. EMEND [Suspect]
     Active Substance: APREPITANT
     Indication: PROPHYLAXIS OF NAUSEA AND VOMITING
     Dosage: 125 MG, DAY 1
     Route: 048
     Dates: start: 20150728, end: 20150728
  3. IRBESARTAN. [Concomitant]
     Active Substance: IRBESARTAN
     Indication: HYPERTENSION
     Dosage: 150 MG, QD
     Route: 048
  4. AMLODIPINE BESYLATE. [Concomitant]
     Active Substance: AMLODIPINE BESYLATE
     Indication: HYPERTENSION
     Dosage: 5 MG, QD
     Route: 048
  5. LIDOCAINE HYDROCHLORIDE. [Concomitant]
     Active Substance: LIDOCAINE HYDROCHLORIDE
     Indication: CENTRAL VENOUS CATHETERISATION
     Dosage: 0.1 G, ONCE
     Route: 058
     Dates: start: 20150727, end: 20150727
  6. UBENIMEX [Concomitant]
     Active Substance: UBENIMEX
     Indication: IMMUNE ENHANCEMENT THERAPY
     Dosage: 30 MG, QD
     Route: 048
     Dates: start: 20150727, end: 20150803
  7. XIAO AI PING PIAN [Concomitant]
     Indication: PROPHYLAXIS
     Dosage: 40 ML/CC, QD
     Route: 041
     Dates: start: 20150727, end: 20150803

REACTIONS (1)
  - Alanine aminotransferase increased [Recovered/Resolved]

NARRATIVE: CASE EVENT DATE: 20150728
